FAERS Safety Report 9911519 (Version 1)
Quarter: 2014Q1

REPORT INFORMATION
  Report Type: Spontaneous
  Country: US (occurrence: US)
  Receive Date: 20140219
  Receipt Date: 20140219
  Transmission Date: 20141002
  Serious: Yes (Other)
  Sender: FDA-Public Use
  Company Number: PHHY2014US016230

PATIENT
  Age: 74 Year
  Sex: Male

DRUGS (1)
  1. 5-FLUOROURACIL [Suspect]
     Route: 042

REACTIONS (4)
  - Systemic lupus erythematosus [Unknown]
  - Rash erythematous [Recovering/Resolving]
  - Exfoliative rash [Recovering/Resolving]
  - Seborrhoeic dermatitis [Unknown]
